FAERS Safety Report 5857121-6 (Version None)
Quarter: 2008Q3

REPORT INFORMATION
  Report Type: 
  Country: None (occurrence: None)
  Receive Date: 20080825
  Receipt Date: 20080819
  Transmission Date: 20090109
  Serious: Yes (Other)
  Sender: FDA-Public Use
  Company Number: CH-ABBOTT-08P-151-0471728-00

PATIENT
  Age: 79 Year
  Sex: Male

DRUGS (3)
  1. CLARITHROMYCIN [Suspect]
     Indication: PNEUMONIA BACTERIAL
     Dosage: NOT REPORTED
  2. RIFABUTIN [Suspect]
     Indication: PNEUMONIA BACTERIAL
     Dosage: NOT REPORTED
  3. ETHAMBUTOL HCL [Concomitant]
     Indication: PNEUMONIA BACTERIAL
     Dosage: NOT REPORTED

REACTIONS (1)
  - UVEITIS [None]
